FAERS Safety Report 6182296-1 (Version None)
Quarter: 2009Q2

REPORT INFORMATION
  Report Type: 
  Country: None (occurrence: None)
  Receive Date: 20090507
  Receipt Date: 20090427
  Transmission Date: 20091009
  Serious: Yes (Hospitalization)
  Sender: FDA-Public Use
  Company Number: JP-JNJFOC-20090500147

PATIENT
  Sex: Female
  Weight: 52 kg

DRUGS (25)
  1. BLINDED; GOLIMUMA [Suspect]
     Route: 058
  2. BLINDED; GOLIMUMA [Suspect]
     Route: 058
  3. BLINDED; GOLIMUMA [Suspect]
     Route: 058
  4. BLINDED; GOLIMUMA [Suspect]
     Route: 058
  5. BLINDED; GOLIMUMA [Suspect]
     Route: 058
  6. BLINDED; GOLIMUMA [Suspect]
     Route: 058
  7. BLINDED; GOLIMUMA [Suspect]
     Route: 058
  8. BLINDED; GOLIMUMA [Suspect]
     Indication: RHEUMATOID ARTHRITIS
     Route: 058
  9. PLACEBO [Suspect]
     Route: 058
  10. PLACEBO [Suspect]
     Route: 058
  11. PLACEBO [Suspect]
     Route: 058
  12. PLACEBO [Suspect]
     Route: 058
  13. PLACEBO [Suspect]
     Route: 058
  14. PLACEBO [Suspect]
     Route: 058
  15. PLACEBO [Suspect]
     Route: 058
  16. PLACEBO [Suspect]
     Indication: RHEUMATOID ARTHRITIS
     Route: 058
  17. MOBIC [Concomitant]
     Indication: RHEUMATOID ARTHRITIS
     Route: 048
  18. FOLIAMIN [Concomitant]
     Indication: PROPHYLAXIS
     Route: 048
  19. KETOPROFEN [Concomitant]
     Indication: RHEUMATOID ARTHRITIS
     Route: 003
  20. ISONIAZID [Concomitant]
     Indication: ANTIBIOTIC PROPHYLAXIS
     Route: 048
  21. PYDOXAL [Concomitant]
     Indication: PROPHYLAXIS
     Route: 048
  22. BUSCOPAN [Concomitant]
     Indication: ABDOMINAL PAIN
     Route: 048
  23. MAGMITT [Concomitant]
     Indication: CONSTIPATION
     Route: 048
  24. SENNARIDE [Concomitant]
     Indication: CONSTIPATION
     Route: 048
  25. RHEUMATREX [Concomitant]
     Indication: RHEUMATOID ARTHRITIS
     Route: 048

REACTIONS (1)
  - BONE NEOPLASM [None]
